FAERS Safety Report 5266829-5 (Version None)
Quarter: 2007Q1

REPORT INFORMATION
  Report Type: 
  Country: None (occurrence: None)
  Receive Date: 20061213
  Receipt Date: 20040525
  Transmission Date: 20070707
  Serious: No
  Sender: FDA-Public Use
  Company Number: 2004UW11014

PATIENT
  Age: 53 Year
  Sex: Female
  Weight: 56.6996 kg

DRUGS (5)
  1. NOLVADEX [Suspect]
     Indication: BREAST CANCER
  2. SYNTHROID [Concomitant]
  3. PRILOSEC [Concomitant]
  4. SERZONE [Concomitant]
  5. VIACTIV [Concomitant]

REACTIONS (2)
  - DEPRESSION [None]
  - UTERINE POLYP [None]
